FAERS Safety Report 9341497 (Version 1)
Quarter: 2013Q2

REPORT INFORMATION
  Report Type: Spontaneous
  Country: US (occurrence: US)
  Receive Date: 20130611
  Receipt Date: 20130611
  Transmission Date: 20140414
  Serious: Yes (Hospitalization, Other)
  Sender: FDA-Public Use
  Company Number: US-JNJFOC-20130602581

PATIENT
  Age: 58 Year
  Sex: Female

DRUGS (2)
  1. ACETAMINOPHEN [Suspect]
     Route: 065
  2. ACETAMINOPHEN [Suspect]
     Indication: PAIN
     Dosage: MORE THAN 4 GRAMS PER DAY
     Route: 065

REACTIONS (7)
  - Metabolic acidosis [Recovering/Resolving]
  - Nausea [Unknown]
  - Vomiting [Unknown]
  - Diarrhoea [Unknown]
  - Mental status changes [Unknown]
  - Overdose [Unknown]
  - Leukocytosis [Unknown]
